FAERS Safety Report 20975182 (Version 1)
Quarter: 2022Q2

REPORT INFORMATION
  Report Type: Spontaneous
  Country: JP (occurrence: JP)
  Receive Date: 20220617
  Receipt Date: 20220617
  Transmission Date: 20220720
  Serious: Yes (Other)
  Sender: FDA-Public Use
  Company Number: JP-ASTELLAS-2022JP008889

PATIENT
  Age: 85 Year
  Sex: Male

DRUGS (4)
  1. PADCEV [Suspect]
     Active Substance: ENFORTUMAB VEDOTIN-EJFV
     Indication: Metastases to lung
     Dosage: UNK UNK, UNKNOWN FREQ.
     Route: 065
  2. PADCEV [Suspect]
     Active Substance: ENFORTUMAB VEDOTIN-EJFV
     Indication: Retroperitoneal neoplasm
  3. PEMBROLIZUMAB [Concomitant]
     Active Substance: PEMBROLIZUMAB
     Indication: Metastases to lung
     Dosage: UNK UNK, UNKNOWN FREQ.
     Route: 065
  4. PEMBROLIZUMAB [Concomitant]
     Active Substance: PEMBROLIZUMAB
     Indication: Metastases to lymph nodes

REACTIONS (1)
  - Neutropenia [Unknown]
